FAERS Safety Report 14025344 (Version 3)
Quarter: 2017Q4

REPORT INFORMATION
  Report Type: Spontaneous
  Country: JP (occurrence: JP)
  Receive Date: 20170929
  Receipt Date: 20171102
  Transmission Date: 20180321
  Serious: Yes (Other)
  Sender: FDA-Public Use
  Company Number: JP-GLAXOSMITHKLINE-JP2017JPN149381

PATIENT
  Age: 81 Year
  Sex: Male

DRUGS (3)
  1. FP (JAPAN) [Concomitant]
     Indication: PARKINSON^S DISEASE
     Dosage: 7.5 MG, BID
     Dates: start: 20170926
  2. MENESIT [Concomitant]
     Active Substance: CARBIDOPA\LEVODOPA
     Indication: PARKINSON^S DISEASE
     Dosage: 1750 MG, 1D
     Dates: start: 20170926
  3. REQUIP [Suspect]
     Active Substance: ROPINIROLE HYDROCHLORIDE
     Indication: PARKINSON^S DISEASE
     Dosage: 8 MG, QD
     Route: 048
     Dates: end: 20170926

REACTIONS (2)
  - Sudden onset of sleep [Recovering/Resolving]
  - Altered state of consciousness [Unknown]

NARRATIVE: CASE EVENT DATE: 20170926
